FAERS Safety Report 6441897-3 (Version None)
Quarter: 2009Q4

REPORT INFORMATION
  Report Type: 
  Country: None (occurrence: None)
  Receive Date: 20091113
  Receipt Date: 20091113
  Transmission Date: 20100525
  Serious: Yes (Hospitalization)
  Sender: FDA-Public Use
  Company Number: None

PATIENT
  Age: 25 Year
  Sex: Female
  Weight: 65.7716 kg

DRUGS (3)
  1. MEDICATIED ZERO BUMPS PADS ANALGESIC PRAMOXINE HYDOCL  SALLY HANSEN [Suspect]
     Indication: PROPHYLAXIS
     Dosage: 1 PAD 1 TIME TOP
     Route: 061
     Dates: start: 20090227, end: 20090227
  2. MEDICATIED ZERO BUMPS PADS ANALGESIC PRAMOXINE HYDOCL  SALLY HANSEN [Suspect]
     Indication: PSEUDOFOLLICULITIS BARBAE
     Dosage: 1 PAD 1 TIME TOP
     Route: 061
     Dates: start: 20090227, end: 20090227
  3. MEDICATIED ZERO BUMPS PADS ANALGESIC PRAMOXINE HYDOCL  SALLY HANSEN [Suspect]
     Indication: SKIN COSMETIC PROCEDURE
     Dosage: 1 PAD 1 TIME TOP
     Route: 061
     Dates: start: 20090227, end: 20090227

REACTIONS (6)
  - APPLICATION SITE REACTION [None]
  - CELLULITIS [None]
  - DERMATITIS CONTACT [None]
  - FATIGUE [None]
  - HYPERSOMNIA [None]
  - IMPAIRED WORK ABILITY [None]
